FAERS Safety Report 7420291-2 (Version None)
Quarter: 2011Q2

REPORT INFORMATION
  Report Type: 
  Country: None (occurrence: None)
  Receive Date: 20110418
  Receipt Date: 20110404
  Transmission Date: 20111010
  Serious: Yes (Other)
  Sender: FDA-Public Use
  Company Number: PHHY2011US29539

PATIENT
  Sex: Male

DRUGS (21)
  1. ATIVAN [Concomitant]
     Dosage: 0.5 MG, UNK
  2. COUMADIN [Concomitant]
  3. FOLIC ACID [Concomitant]
  4. OMEPRAZOLE [Concomitant]
  5. CARDURA [Concomitant]
  6. AMBIEN [Concomitant]
  7. MUCINEX [Concomitant]
  8. LOMOTIL [Concomitant]
  9. DILAUDID [Concomitant]
     Dosage: 4 MG, UNK
  10. PREDNISONE [Concomitant]
  11. METHADONE [Concomitant]
  12. TRICOR [Concomitant]
  13. MIRALAX [Concomitant]
  14. VALIUM [Concomitant]
  15. EXJADE [Suspect]
     Indication: SICKLE CELL ANAEMIA
     Dosage: 2000 MG, UNK
     Route: 048
     Dates: start: 20060509
  16. HYDREA [Concomitant]
  17. ASPIRIN [Concomitant]
  18. BLOOD TRANSFUSION, AUXILIARY PRODUCTS [Concomitant]
     Indication: SICKLE CELL ANAEMIA
  19. VALIUM [Concomitant]
  20. ALBUTEROL [Concomitant]
  21. MORPHINE [Concomitant]

REACTIONS (11)
  - THROMBOSIS [None]
  - BLOOD CREATININE INCREASED [None]
  - BLOOD UREA INCREASED [None]
  - SARCOIDOSIS [None]
  - BLOOD GLUCOSE INCREASED [None]
  - ASPARTATE AMINOTRANSFERASE INCREASED [None]
  - ALANINE AMINOTRANSFERASE INCREASED [None]
  - BLOOD BILIRUBIN INCREASED [None]
  - PAIN [None]
  - SICKLE CELL ANAEMIA WITH CRISIS [None]
  - LYMPHADENOPATHY MEDIASTINAL [None]
